FAERS Safety Report 14589670 (Version 2)
Quarter: 2018Q1

REPORT INFORMATION
  Report Type: Report from Study
  Country: KR (occurrence: KR)
  Receive Date: 20180302
  Receipt Date: 20180327
  Transmission Date: 20180509
  Serious: Yes (Hospitalization)
  Sender: FDA-Public Use
  Company Number: KR-ASTRAZENECA-2018SE23164

PATIENT
  Age: 15961 Day
  Sex: Female
  Weight: 39 kg

DRUGS (15)
  1. ZOLPIRAM TABLET [Concomitant]
     Indication: INSOMNIA
     Route: 048
     Dates: start: 20170503
  2. NORMAL SALINE [Suspect]
     Active Substance: SODIUM CHLORIDE
     Indication: PRODUCT USED FOR UNKNOWN INDICATION
     Route: 042
     Dates: start: 20180123, end: 20180123
  3. MAGNESIUM OXIDE. [Concomitant]
     Active Substance: MAGNESIUM OXIDE
     Indication: CONSTIPATION
     Dosage: 3 T, THREE TIMES A DAY
     Route: 048
     Dates: start: 20170530
  4. NORMAL SALINE [Suspect]
     Active Substance: SODIUM CHLORIDE
     Indication: PRODUCT USED FOR UNKNOWN INDICATION
     Route: 042
     Dates: start: 20180110, end: 20180110
  5. TARGIN PR TABLET [Concomitant]
     Active Substance: NALOXONE HYDROCHLORIDE\OXYCODONE HYDROCHLORIDE
     Indication: PAIN
     Route: 048
     Dates: start: 20170905
  6. MUCOMYST B.R SOLUTION [Concomitant]
     Indication: PRODUCTIVE COUGH
     Dosage: 1 BIAL , TWO TIMES A DAY
     Route: 055
     Dates: start: 20170530
  7. ATIVAN TABLET [Concomitant]
     Indication: INSOMNIA
     Route: 048
     Dates: start: 20170603
  8. DURVALUMAB. [Suspect]
     Active Substance: DURVALUMAB
     Indication: PRODUCT USED FOR UNKNOWN INDICATION
     Route: 042
     Dates: start: 20180123, end: 20180123
  9. LANSTON LFDT TABLET [Concomitant]
     Indication: GASTROINTESTINAL INFECTION
     Route: 048
     Dates: start: 20170530
  10. DURVALUMAB. [Suspect]
     Active Substance: DURVALUMAB
     Indication: PRODUCT USED FOR UNKNOWN INDICATION
     Route: 042
     Dates: start: 20180224, end: 20180224
  11. DURVALUMAB. [Suspect]
     Active Substance: DURVALUMAB
     Indication: PRODUCT USED FOR UNKNOWN INDICATION
     Route: 042
     Dates: start: 20180307, end: 20180307
  12. IRCODON TABLET [Concomitant]
     Indication: PAIN
     Dosage: 5.0MG AS REQUIRED
     Route: 048
     Dates: start: 20170906
  13. TANTUM SOLUTION [Concomitant]
     Indication: MUCOSAL INFLAMMATION
     Route: 048
     Dates: start: 20170816
  14. LYRICA [Concomitant]
     Active Substance: PREGABALIN
     Indication: PAIN
     Dosage: 75 MG, 2 CAPSULE , TWO TIMES A DAY
     Route: 048
     Dates: start: 20170530
  15. DURVALUMAB. [Suspect]
     Active Substance: DURVALUMAB
     Indication: PRODUCT USED FOR UNKNOWN INDICATION
     Route: 042
     Dates: start: 20180110, end: 20180110

REACTIONS (1)
  - Stomatitis [Recovered/Resolved]

NARRATIVE: CASE EVENT DATE: 20180207
